FAERS Safety Report 23784526 (Version 2)
Quarter: 2024Q2

REPORT INFORMATION
  Report Type: Spontaneous
  Country: SG (occurrence: None)
  Receive Date: 20240425
  Receipt Date: 20240602
  Transmission Date: 20240716
  Serious: Yes (Other)
  Sender: FDA-Public Use
  Company Number: 2024A092378

PATIENT

DRUGS (1)
  1. BENRALIZUMAB [Suspect]
     Active Substance: BENRALIZUMAB
     Route: 058

REACTIONS (4)
  - Eosinophilic granulomatosis with polyangiitis [Unknown]
  - Cutaneous vasculitis [Unknown]
  - Eosinophil count abnormal [Unknown]
  - Hypoaesthesia [Unknown]
